FAERS Safety Report 12577767 (Version 1)
Quarter: 2016Q3

REPORT INFORMATION
  Report Type: Spontaneous
  Country: IT (occurrence: IT)
  Receive Date: 20160721
  Receipt Date: 20160721
  Transmission Date: 20161109
  Serious: Yes (Hospitalization)
  Sender: FDA-Public Use
  Company Number: IT-SUN PHARMACEUTICAL INDUSTRIES LTD-2016RR-120577

PATIENT
  Age: 79 Year
  Sex: Female

DRUGS (4)
  1. SELEPARINA 4 ML [Suspect]
     Active Substance: NADROPARIN CALCIUM
     Indication: WRIST FRACTURE
     Dosage: 1 DF DAILY
     Route: 058
     Dates: start: 20160226, end: 20160229
  2. PARACETAMOL [Suspect]
     Active Substance: ACETAMINOPHEN
     Indication: PROCEDURAL PAIN
     Dosage: 1 G AS NECESSARY
     Route: 048
     Dates: start: 20160226, end: 20160229
  3. ANTRA [Concomitant]
     Active Substance: OMEPRAZOLE
     Indication: PRODUCT USED FOR UNKNOWN INDICATION
     Dosage: 20 MG
     Route: 048
  4. SOTALOL. [Concomitant]
     Active Substance: SOTALOL
     Indication: HYPERTENSION
     Dosage: 80 G
     Route: 065

REACTIONS (2)
  - Urticaria [Recovering/Resolving]
  - Pruritus [Recovering/Resolving]

NARRATIVE: CASE EVENT DATE: 20160229
